FAERS Safety Report 4328643-4 (Version None)
Quarter: 2004Q2

REPORT INFORMATION
  Report Type: 
  Country: None (occurrence: None)
  Receive Date: 20040401
  Receipt Date: 20040310
  Transmission Date: 20050107
  Serious: Yes (Hospitalization)
  Sender: FDA-Public Use
  Company Number: PHBS2004JP03367

PATIENT
  Age: 75 Year
  Sex: Male
  Weight: 69 kg

DRUGS (7)
  1. DIOVAN [Suspect]
     Indication: HYPERTENSION
     Dosage: 20 MG/DAY
     Route: 048
     Dates: start: 20030715, end: 20040301
  2. ZYLORIC [Concomitant]
     Indication: HYPERURICAEMIA
     Dosage: 100 MG, UNK
     Route: 048
  3. EUGLUCON [Concomitant]
     Indication: DIABETES MELLITUS
     Dosage: 2.5 MG, UNK
     Route: 048
  4. ARTIST [Concomitant]
     Indication: HYPERTENSION
     Dosage: 10 MG, UNK
     Route: 048
  5. BASEN [Concomitant]
     Indication: DIABETES MELLITUS
     Dosage: .9 MG, UNK
     Route: 048
  6. WARFARIN SODIUM [Concomitant]
     Indication: ATRIAL FIBRILLATION
     Dosage: 4 MG, UNK
     Route: 048
  7. DIPYRIDAMOLE [Concomitant]
     Indication: PNEUMONIA
     Dosage: 45 MG, UNK
     Route: 048

REACTIONS (4)
  - COUGH [None]
  - DYSPNOEA [None]
  - HAEMOPTYSIS [None]
  - INTERSTITIAL LUNG DISEASE [None]
